FAERS Safety Report 6017129-7 (Version None)
Quarter: 2008Q4

REPORT INFORMATION
  Report Type: 
  Country: None (occurrence: None)
  Receive Date: 20081223
  Receipt Date: 20081212
  Transmission Date: 20090506
  Serious: Yes (Other)
  Sender: FDA-Public Use
  Company Number: JP-ROCHE-603558

PATIENT
  Age: 58 Year
  Sex: Female

DRUGS (3)
  1. DIAZEPAM [Suspect]
     Indication: DRUG USE FOR UNKNOWN INDICATION
     Route: 048
     Dates: start: 20071001, end: 20080101
  2. DIAZEPAM [Suspect]
     Route: 048
     Dates: start: 20080101, end: 20080101
  3. UNSPECIFIED DRUG [Suspect]
     Indication: DRUG USE FOR UNKNOWN INDICATION
     Route: 065

REACTIONS (1)
  - DRUG ERUPTION [None]
